FAERS Safety Report 10776911 (Version 1)
Quarter: 2015Q1

REPORT INFORMATION
  Report Type: Spontaneous
  Country: GR (occurrence: GR)
  Receive Date: 20150209
  Receipt Date: 20150209
  Transmission Date: 20150721
  Serious: Yes (Hospitalization)
  Sender: FDA-Public Use
  Company Number: PHHY2015GR010867

PATIENT
  Age: 68 Year
  Sex: Male

DRUGS (2)
  1. AFINITOR [Suspect]
     Active Substance: EVEROLIMUS
     Indication: PANCREATIC NEUROENDOCRINE TUMOUR
     Route: 065
  2. AFINITOR [Suspect]
     Active Substance: EVEROLIMUS
     Route: 065

REACTIONS (1)
  - Hypercalcaemia [Unknown]
